FAERS Safety Report 6115292-0 (Version None)
Quarter: 2009Q1

REPORT INFORMATION
  Report Type: 
  Country: None (occurrence: None)
  Receive Date: 20090313
  Receipt Date: 20090303
  Transmission Date: 20090719
  Serious: Yes (Hospitalization)
  Sender: FDA-Public Use
  Company Number: US-ASTRAZENECA-2008SE02270

PATIENT
  Age: 20368 Day
  Sex: Female

DRUGS (4)
  1. LISINOPRIL [Suspect]
     Dates: start: 20080225
  2. ESOMEPRAZOLE + NAPROXEN [Suspect]
     Indication: ARTHRALGIA
     Route: 048
     Dates: start: 20071205, end: 20080330
  3. ESOMEPRAZOLE + NAPROXEN [Suspect]
     Indication: PROPHYLAXIS AGAINST GASTROINTESTINAL ULCER
     Route: 048
     Dates: start: 20071205, end: 20080330
  4. SIMVASTATIN [Concomitant]
     Dates: start: 20080225

REACTIONS (1)
  - STAPHYLOCOCCAL INFECTION [None]
